FAERS Safety Report 15757102 (Version 1)
Quarter: 2018Q4

REPORT INFORMATION
  Report Type: Other
  Country: ES (occurrence: ES)
  Receive Date: 20181224
  Receipt Date: 20181224
  Transmission Date: 20190205
  Serious: Yes (Hospitalization)
  Sender: FDA-Public Use
  Company Number: ES-ACTELION-A-CH2018-183923

PATIENT
  Age: 53 Year
  Sex: Male

DRUGS (1)
  1. EPOPROSTENOL SODIUM. [Suspect]
     Active Substance: EPOPROSTENOL SODIUM
     Indication: PRODUCT USED FOR UNKNOWN INDICATION
     Dosage: UNK, CONT INFUS
     Route: 042

REACTIONS (7)
  - Productive cough [Unknown]
  - Hepatic steatosis [Unknown]
  - Febrile neutropenia [Unknown]
  - Cough [Unknown]
  - Bacteraemia [Unknown]
  - Pyrexia [Unknown]
  - Blood culture positive [Unknown]
